FAERS Safety Report 8536438 (Version 2)
Quarter: 2014Q3

REPORT INFORMATION
  Report Type: Spontaneous
  Country: FR (occurrence: FR)
  Receive Date: 20120430
  Receipt Date: 20140725
  Transmission Date: 20150326
  Serious: Yes (Hospitalization, Congenital Anomaly)
  Sender: FDA-Public Use
  Company Number: FR-VIIV HEALTHCARE LIMITED-B0796316A

PATIENT
  Sex: Female

DRUGS (1)
  1. RETROVIR [Suspect]
     Active Substance: ZIDOVUDINE
     Indication: PROPHYLAXIS AGAINST HIV INFECTION
     Route: 064
     Dates: start: 1997, end: 1997

REACTIONS (14)
  - Developmental delay [Unknown]
  - Ataxia [Unknown]
  - Resting tremor [Unknown]
  - Encephalopathy [Unknown]
  - Mental retardation [Not Recovered/Not Resolved]
  - Epilepsy [Not Recovered/Not Resolved]
  - Cerebellar syndrome [Unknown]
  - Abnormal behaviour [Unknown]
  - Foetal exposure during pregnancy [Unknown]
  - Nervous system disorder [Not Recovered/Not Resolved]
  - Dysmorphism [Not Recovered/Not Resolved]
  - Body height below normal [Not Recovered/Not Resolved]
  - Intention tremor [Unknown]
  - Hypokinesia [Unknown]

NARRATIVE: CASE EVENT DATE: 1997
